FAERS Safety Report 5311987-7 (Version None)
Quarter: 2007Q2

REPORT INFORMATION
  Report Type: 
  Country: None (occurrence: None)
  Receive Date: 20070430
  Receipt Date: 20060501
  Transmission Date: 20071010
  Serious: No
  Sender: FDA-Public Use
  Company Number: 2006UW07857

PATIENT
  Age: 68 Year
  Sex: Female
  Weight: 58.9 kg

DRUGS (6)
  1. NEXIUM [Suspect]
     Indication: GASTROOESOPHAGEAL REFLUX DISEASE
     Route: 048
     Dates: start: 20050101
  2. BUSPAR [Concomitant]
  3. KLONOPIN [Concomitant]
  4. ACTONIL [Concomitant]
  5. NORVASC [Concomitant]
  6. OTHER DRUGS PRN [Concomitant]

REACTIONS (1)
  - ALOPECIA [None]
